FAERS Safety Report 4571954-8 (Version None)
Quarter: 2005Q1

REPORT INFORMATION
  Report Type: 
  Country: None (occurrence: None)
  Receive Date: 20050203
  Receipt Date: 20050203
  Transmission Date: 20050727
  Serious: Yes (Hospitalization)
  Sender: FDA-Public Use
  Company Number: None

PATIENT
  Age: 78 Year
  Sex: Female
  Weight: 57.1532 kg

DRUGS (1)
  1. CELEBREX [Suspect]
     Indication: ARTHRALGIA
     Dosage: AS NEEDED FOR ARTHRITIS PAIN
     Dates: start: 20031001, end: 20040601

REACTIONS (2)
  - GASTROINTESTINAL ULCER HAEMORRHAGE [None]
  - LOSS OF CONSCIOUSNESS [None]
